FAERS Safety Report 10220933 (Version 1)
Quarter: 2014Q2

REPORT INFORMATION
  Report Type: Spontaneous
  Country: AU (occurrence: AU)
  Receive Date: 20140606
  Receipt Date: 20140606
  Transmission Date: 20141212
  Serious: Yes (Hospitalization)
  Sender: FDA-Public Use
  Company Number: AU-009507513-1406AUS000862

PATIENT
  Age: 58 Year
  Sex: Female

DRUGS (3)
  1. CELESTONE CHRONODOSE [Suspect]
     Dosage: 2 MG, ONCE
     Route: 052
     Dates: start: 20130809, end: 20130809
  2. CELESTONE CHRONODOSE [Suspect]
     Dosage: UNK
     Dates: start: 2011
  3. CELESTONE CHRONODOSE [Suspect]
     Dosage: UNK
     Dates: start: 2012

REACTIONS (1)
  - Pancreatitis [Recovered/Resolved]
